FAERS Safety Report 9830479 (Version 1)
Quarter: 2014Q1

REPORT INFORMATION
  Report Type: Spontaneous
  Country: US (occurrence: US)
  Receive Date: 20140120
  Receipt Date: 20140120
  Transmission Date: 20141002
  Serious: Yes (Hospitalization)
  Sender: FDA-Public Use
  Company Number: US-GLAXOSMITHKLINE-A1057297A

PATIENT
  Age: 70 Year
  Sex: Female

DRUGS (1)
  1. PROMACTA [Suspect]
     Indication: PLATELET COUNT DECREASED
     Route: 065
     Dates: start: 20101110

REACTIONS (1)
  - Platelet count decreased [Unknown]
